FAERS Safety Report 10701411 (Version 1)
Quarter: 2015Q1

REPORT INFORMATION
  Report Type: Spontaneous
  Country: DE (occurrence: DE)
  Receive Date: 20150109
  Receipt Date: 20150109
  Transmission Date: 20150721
  Serious: Yes (Hospitalization, Other)
  Sender: FDA-Public Use
  Company Number: DE-ELI_LILLY_AND_COMPANY-DE201412009984

PATIENT
  Age: 58 Year
  Sex: Male

DRUGS (9)
  1. LITHIUM [Concomitant]
     Active Substance: LITHIUM CARBONATE
     Dosage: UNK, UNKNOWN
     Route: 065
  2. LEPONEX [Concomitant]
     Active Substance: CLOZAPINE
     Dosage: 50 MG, UNKNOWN
     Route: 065
  3. CARBAMAZEPIN [Concomitant]
     Active Substance: CARBAMAZEPINE
     Dosage: UNK, UNKNOWN
     Route: 065
  4. ZYPREXA [Suspect]
     Active Substance: OLANZAPINE
     Dosage: 15 MG, UNKNOWN
     Route: 065
     Dates: end: 20141015
  5. QUILONUM                           /00033702/ [Concomitant]
     Active Substance: LITHIUM CARBONATE
     Dosage: 1.5 DF, UNKNOWN
     Route: 065
  6. RISPERIDON [Suspect]
     Active Substance: RISPERIDONE
     Indication: PRODUCT USED FOR UNKNOWN INDICATION
     Dosage: 1 MG, UNKNOWN
     Route: 065
  7. ZYPREXA [Suspect]
     Active Substance: OLANZAPINE
     Indication: PRODUCT USED FOR UNKNOWN INDICATION
     Dosage: 5 MG, BID
     Route: 065
     Dates: start: 19990726
  8. ZYPREXA [Suspect]
     Active Substance: OLANZAPINE
     Dosage: 20 MG, UNKNOWN
     Route: 065
  9. LEPONEX [Concomitant]
     Active Substance: CLOZAPINE
     Dosage: 300 MG, UNKNOWN
     Route: 065

REACTIONS (8)
  - Agitation [Unknown]
  - Haematoma [Unknown]
  - Pyrexia [Unknown]
  - Blood creatine phosphokinase increased [Recovering/Resolving]
  - Mania [Unknown]
  - Pneumonia [Unknown]
  - Weight increased [Unknown]
  - Generalised tonic-clonic seizure [Unknown]

NARRATIVE: CASE EVENT DATE: 1999
